FAERS Safety Report 4880572-3 (Version None)
Quarter: 2006Q1

REPORT INFORMATION
  Report Type: 
  Country: None (occurrence: None)
  Receive Date: 20060113
  Receipt Date: 20060103
  Transmission Date: 20060701
  Serious: Yes (Hospitalization, Other)
  Sender: FDA-Public Use
  Company Number: TR-MERCK-0601TUR00002

PATIENT
  Age: 4 Year
  Sex: Female

DRUGS (4)
  1. SINGULAIR [Suspect]
     Indication: ASTHMA
     Route: 065
  2. ALBUTEROL [Concomitant]
     Indication: ASTHMA
     Route: 065
  3. PREDNISOLONE [Concomitant]
     Indication: ASTHMA
     Route: 065
  4. AMINOPHYLLINE [Concomitant]
     Indication: ASTHMA
     Route: 065

REACTIONS (4)
  - DRUG EFFECT DECREASED [None]
  - PNEUMOMEDIASTINUM [None]
  - PNEUMOPERICARDIUM [None]
  - SUBCUTANEOUS EMPHYSEMA [None]
